FAERS Safety Report 4712730-2 (Version None)
Quarter: 2005Q3

REPORT INFORMATION
  Report Type: 
  Country: None (occurrence: None)
  Receive Date: 20050701
  Receipt Date: 20050331
  Transmission Date: 20060218
  Serious: Yes (Hospitalization)
  Sender: FDA-Public Use
  Company Number: 2005053711

PATIENT

DRUGS (1)
  1. ZOLOFT [Suspect]
     Indication: BIPOLAR DISORDER

REACTIONS (1)
  - MANIA [None]
